FAERS Safety Report 13493428 (Version 1)
Quarter: 2017Q2

REPORT INFORMATION
  Report Type: Report from Study
  Country: US (occurrence: US)
  Receive Date: 20170427
  Receipt Date: 20170427
  Transmission Date: 20170830
  Serious: Yes (Hospitalization)
  Sender: FDA-Public Use
  Company Number: US-ACTELION-A-NJ2017-153085

PATIENT
  Age: 76 Year
  Sex: Female

DRUGS (11)
  1. PANTOPRAZOLE SODIUM. [Concomitant]
     Active Substance: PANTOPRAZOLE SODIUM
  2. DALIRESP [Concomitant]
     Active Substance: ROFLUMILAST
  3. TRACLEER [Suspect]
     Active Substance: BOSENTAN
     Indication: CHRONIC OBSTRUCTIVE PULMONARY DISEASE
     Dosage: 125 MG, UNK
     Route: 048
     Dates: start: 20170201
  4. ALBUTEROL SULFATE. [Concomitant]
     Active Substance: ALBUTEROL SULFATE
  5. DOXYCYCLINE HYCLATE. [Concomitant]
     Active Substance: DOXYCYCLINE HYCLATE
  6. XARELTO [Concomitant]
     Active Substance: RIVAROXABAN
  7. WARFARIN [Concomitant]
     Active Substance: WARFARIN
  8. PREDNISONE. [Concomitant]
     Active Substance: PREDNISONE
  9. FAMOTIDINE. [Concomitant]
     Active Substance: FAMOTIDINE
  10. AMOXICILLIN. [Concomitant]
     Active Substance: AMOXICILLIN
  11. SPIRONOLACTONE. [Concomitant]
     Active Substance: SPIRONOLACTONE

REACTIONS (1)
  - Influenza [Recovered/Resolved]
